FAERS Safety Report 5045149-8 (Version None)
Quarter: 2006Q3

REPORT INFORMATION
  Report Type: 
  Country: None (occurrence: None)
  Receive Date: 20060705
  Receipt Date: 20060619
  Transmission Date: 20061208
  Serious: Yes (Congenital Anomaly, Other)
  Sender: FDA-Public Use
  Company Number: 2005BI018964

PATIENT
  Age: 37 Year
  Sex: Female

DRUGS (6)
  1. AVONEX [Suspect]
     Indication: MULTIPLE SCLEROSIS
     Dosage: 30 UG;QW
     Dates: start: 20040422
  2. ALDOMET [Concomitant]
  3. LABETALOL HCL [Concomitant]
  4. FOLIC ACID [Concomitant]
  5. VITAMIN AND MINERAL PRENATAL SUPPLEMENT W/ FOLIC ACID CAP [Concomitant]
  6. GLYBURIDE [Concomitant]

REACTIONS (7)
  - ABORTION INDUCED [None]
  - CONGENITAL ANOMALY [None]
  - CONGENITAL CENTRAL NERVOUS SYSTEM ANOMALY [None]
  - MULTIPLE PREGNANCY [None]
  - PREGNANCY OF PARTNER [None]
  - STILLBIRTH [None]
  - TRANSMISSION OF DRUG VIA SEMEN [None]
